FAERS Safety Report 15379029 (Version 1)
Quarter: 2018Q3

REPORT INFORMATION
  Report Type: Spontaneous
  Country: US (occurrence: US)
  Receive Date: 20180913
  Receipt Date: 20180913
  Transmission Date: 20181010
  Serious: No
  Sender: FDA-Public Use
  Company Number: US-ADAPT PHARMA INC-2018ADP00039

PATIENT
  Age: 55 Year
  Sex: Female
  Weight: 66.4 kg

DRUGS (10)
  1. PAMELOR [Concomitant]
     Active Substance: NORTRIPTYLINE HYDROCHLORIDE
     Dosage: 10 MG, 1X/DAY AT NIGHT
  2. GABAPENTIN. [Concomitant]
     Active Substance: GABAPENTIN
  3. PERCOCET [Suspect]
     Active Substance: ACETAMINOPHEN\OXYCODONE HYDROCHLORIDE
     Indication: PAIN
     Dosage: UNK, UNK
     Route: 065
     Dates: start: 201612
  4. PERCOCET [Suspect]
     Active Substance: ACETAMINOPHEN\OXYCODONE HYDROCHLORIDE
     Dosage: 1 TABLET (10/325 MG), ONCE
     Route: 065
     Dates: start: 20180626, end: 20180626
  5. MORPHINE [Suspect]
     Active Substance: MORPHINE
     Indication: PAIN
     Dosage: 15 MG, 3X/DAY
     Route: 065
  6. MORPHINE [Suspect]
     Active Substance: MORPHINE
     Dosage: 15 MG, ONCE
     Route: 065
     Dates: start: 20180626, end: 20180626
  7. PAMELOR [Concomitant]
     Active Substance: NORTRIPTYLINE HYDROCHLORIDE
     Dosage: 10 MG, 1X/DAY AT NIGHT
  8. NARCAN [Suspect]
     Active Substance: NALOXONE HYDROCHLORIDE
     Indication: OVERDOSE
     Dosage: 4 MG, ONCE
     Route: 045
     Dates: start: 20180626, end: 20180626
  9. MOTRIN [Concomitant]
     Active Substance: IBUPROFEN
  10. PAMELOR [Concomitant]
     Active Substance: NORTRIPTYLINE HYDROCHLORIDE
     Dosage: 25 MG, 1X/DAY AT NIGHT

REACTIONS (8)
  - Feeling hot [Recovered/Resolved]
  - Feeling abnormal [Recovered/Resolved]
  - Fatigue [Unknown]
  - Piloerection [Recovered/Resolved]
  - Drug withdrawal syndrome [Unknown]
  - Dizziness [Not Recovered/Not Resolved]
  - Diarrhoea [Recovered/Resolved]
  - Feeling cold [Unknown]

NARRATIVE: CASE EVENT DATE: 20180626
